FAERS Safety Report 18740245 (Version 5)
Quarter: 2021Q2

REPORT INFORMATION
  Report Type: Spontaneous
  Country: JP (occurrence: JP)
  Receive Date: 20210114
  Receipt Date: 20210518
  Transmission Date: 20210717
  Serious: Yes (Other)
  Sender: FDA-Public Use
  Company Number: JP-PFIZER INC-2021012666

PATIENT
  Sex: Male

DRUGS (3)
  1. CONTOMIN [CHLORPROMAZINE HYDROCHLORIDE] [Concomitant]
     Dosage: UNK
  2. JZOLOFT [Suspect]
     Active Substance: SERTRALINE HYDROCHLORIDE
     Indication: DEPRESSION
     Dosage: UNK
     Route: 048
  3. KETAMINE [Concomitant]
     Active Substance: KETAMINE
     Dosage: UNK

REACTIONS (24)
  - Toxicity to various agents [Unknown]
  - Tic [Not Recovered/Not Resolved]
  - Nightmare [Unknown]
  - Eczema [Recovered/Resolved]
  - Homicidal ideation [Unknown]
  - Skin exfoliation [Unknown]
  - Aphasia [Recovered/Resolved]
  - Overdose [Unknown]
  - Schizophrenia [Unknown]
  - Tourette^s disorder [Unknown]
  - Hypersensitivity [Unknown]
  - Disease recurrence [Unknown]
  - Stupor [Unknown]
  - Suicidal ideation [Unknown]
  - Coma [Unknown]
  - Neuroleptic malignant syndrome [Unknown]
  - Intentional self-injury [Unknown]
  - Seizure [Unknown]
  - Hallucination [Not Recovered/Not Resolved]
  - Memory impairment [Unknown]
  - Malaise [Unknown]
  - Hallucination, auditory [Unknown]
  - Personality disorder [Unknown]
  - Flat affect [Unknown]
